FAERS Safety Report 7843438-2 (Version None)
Quarter: 2011Q4

REPORT INFORMATION
  Report Type: 
  Country: None (occurrence: None)
  Receive Date: 20111025
  Receipt Date: 20111018
  Transmission Date: 20120403
  Serious: Yes (Hospitalization, Other)
  Sender: FDA-Public Use
  Company Number: BR-ROCHE-749584

PATIENT
  Sex: Female
  Weight: 54 kg

DRUGS (7)
  1. CALCORT [Concomitant]
  2. BONIVA [Concomitant]
  3. PROCIMAX [Concomitant]
  4. PLAQUENIL [Concomitant]
  5. MABTHERA [Suspect]
     Indication: RHEUMATOID ARTHRITIS
     Dosage: FORM: INFUSION
     Route: 065
     Dates: start: 20100721, end: 20100804
  6. OSTEONUTRI [Concomitant]
  7. PIASCLEDINE (BRAZIL) [Concomitant]

REACTIONS (6)
  - WEIGHT DECREASED [None]
  - OROPHARYNGEAL PAIN [None]
  - PLEURAL DISORDER [None]
  - HYPERSENSITIVITY [None]
  - LYMPHOMA [None]
  - HODGKIN'S DISEASE [None]
